FAERS Safety Report 10620464 (Version 1)
Quarter: 2014Q4

REPORT INFORMATION
  Report Type: Spontaneous
  Country: US (occurrence: US)
  Receive Date: 20141202
  Receipt Date: 20141202
  Transmission Date: 20150529
  Serious: No
  Sender: FDA-Public Use
  Company Number: US-GE HEALTHCARE MEDICAL DIAGNOSTICS-OPTN-PR-1410S-0017

PATIENT
  Age: 58 Year
  Sex: Female

DRUGS (3)
  1. OPTISON [Suspect]
     Active Substance: ALBUMIN (HUMAN)
     Indication: PALPITATIONS
     Route: 042
     Dates: start: 20141021, end: 20141021
  2. OPTISON [Suspect]
     Active Substance: ALBUMIN (HUMAN)
     Indication: HYPERTENSION
     Route: 042
     Dates: start: 20141021, end: 20141021
  3. OPTISON [Suspect]
     Active Substance: ALBUMIN (HUMAN)
     Indication: DIAGNOSTIC PROCEDURE

REACTIONS (1)
  - Muscle spasms [Recovered/Resolved]

NARRATIVE: CASE EVENT DATE: 20141021
